FAERS Safety Report 5167640-6 (Version None)
Quarter: 2006Q4

REPORT INFORMATION
  Report Type: 
  Country: None (occurrence: None)
  Receive Date: 20061204
  Receipt Date: 20061204
  Transmission Date: 20070319
  Serious: Yes (Other)
  Sender: FDA-Public Use
  Company Number: None

PATIENT
  Sex: Female

DRUGS (4)
  1. SERTRALINE [Suspect]
     Indication: ANXIETY
     Dosage: TWO TABLETS DAILY ORAL
     Route: 048
  2. SERTRALINE [Suspect]
     Indication: DEPRESSION
     Dosage: TWO TABLETS DAILY ORAL
     Route: 048
  3. SERTRALINE [Suspect]
     Indication: ANXIETY
     Dosage: TWO TABLETS DAILY ORAL
     Route: 048
  4. SERTRALINE [Suspect]
     Indication: DEPRESSION
     Dosage: TWO TABLETS DAILY ORAL
     Route: 048

REACTIONS (6)
  - ACTIVITIES OF DAILY LIVING IMPAIRED [None]
  - CONDITION AGGRAVATED [None]
  - IRRITABILITY [None]
  - SOCIAL AVOIDANT BEHAVIOUR [None]
  - SOMNOLENCE [None]
  - THERAPEUTIC RESPONSE UNEXPECTED WITH DRUG SUBSTITUTION [None]
